FAERS Safety Report 19760480 (Version 10)
Quarter: 2022Q2

REPORT INFORMATION
  Report Type: Report from Study
  Country: BR (occurrence: BR)
  Receive Date: 20210830
  Receipt Date: 20220607
  Transmission Date: 20220721
  Serious: Yes (Other)
  Sender: FDA-Public Use
  Company Number: NVSC2021BR195494

PATIENT
  Age: 23 Year
  Sex: Female

DRUGS (12)
  1. COSENTYX [Interacting]
     Active Substance: SECUKINUMAB
     Indication: Psoriatic arthropathy
     Dosage: UNK
     Route: 065
     Dates: start: 20210511
  2. COSENTYX [Interacting]
     Active Substance: SECUKINUMAB
     Dosage: 300 MG
     Route: 065
     Dates: start: 20210730
  3. COSENTYX [Interacting]
     Active Substance: SECUKINUMAB
     Dosage: 300 MG
     Route: 065
     Dates: start: 202107
  4. COSENTYX [Interacting]
     Active Substance: SECUKINUMAB
     Dosage: 300 MG
     Route: 065
     Dates: start: 20210806
  5. COSENTYX [Interacting]
     Active Substance: SECUKINUMAB
     Dosage: 300 MG
     Route: 065
     Dates: start: 20210813
  6. COSENTYX [Interacting]
     Active Substance: SECUKINUMAB
     Dosage: 300 MG
     Route: 065
     Dates: start: 20210823
  7. COSENTYX [Interacting]
     Active Substance: SECUKINUMAB
     Dosage: UNK
     Route: 065
     Dates: start: 20210903
  8. COSENTYX [Interacting]
     Active Substance: SECUKINUMAB
     Dosage: UNK
     Route: 065
     Dates: end: 20210910
  9. COSENTYX [Interacting]
     Active Substance: SECUKINUMAB
     Dosage: 300 MG
     Route: 065
     Dates: start: 20211008
  10. COSENTYX [Interacting]
     Active Substance: SECUKINUMAB
     Dosage: UNK
     Route: 065
     Dates: start: 20211105
  11. COSENTYX [Interacting]
     Active Substance: SECUKINUMAB
     Dosage: 300 MG
     Route: 065
     Dates: end: 202202
  12. METHOTREXATE [Interacting]
     Active Substance: METHOTREXATE
     Indication: Product used for unknown indication
     Dosage: UNK
     Route: 065

REACTIONS (17)
  - Respiratory tract infection [Recovered/Resolved]
  - Respiratory tract infection [Recovered/Resolved]
  - Dyspnoea [Unknown]
  - Respiratory tract infection [Unknown]
  - Decreased immune responsiveness [Unknown]
  - Oropharyngeal pain [Unknown]
  - Depression [Unknown]
  - Secretion discharge [Unknown]
  - Drug interaction [Unknown]
  - Irritable bowel syndrome [Not Recovered/Not Resolved]
  - Dry skin [Not Recovered/Not Resolved]
  - Skin exfoliation [Not Recovered/Not Resolved]
  - Rhinitis [Unknown]
  - Headache [Unknown]
  - Dysstasia [Not Recovered/Not Resolved]
  - Arthralgia [Not Recovered/Not Resolved]
  - Drug ineffective [Unknown]

NARRATIVE: CASE EVENT DATE: 20210818
